FAERS Safety Report 17145692 (Version 3)
Quarter: 2020Q1

REPORT INFORMATION
  Report Type: Spontaneous
  Country: BR (occurrence: BR)
  Receive Date: 20191212
  Receipt Date: 20200310
  Transmission Date: 20200409
  Serious: Yes (Other)
  Sender: FDA-Public Use
  Company Number: BR-REGENERON PHARMACEUTICALS, INC.-2019-72276

PATIENT

DRUGS (1)
  1. EYLEA [Suspect]
     Active Substance: AFLIBERCEPT
     Indication: RETINAL VEIN OCCLUSION
     Dosage: 1 DF, ONCE. TOTAL OF ONE DOSE BEFORE EVENT
     Dates: start: 20191128, end: 20191128

REACTIONS (4)
  - Iris adhesions [Recovering/Resolving]
  - Multiple use of single-use product [Unknown]
  - Anterior chamber disorder [Recovering/Resolving]
  - Intraocular pressure decreased [Unknown]

NARRATIVE: CASE EVENT DATE: 20191130
